FAERS Safety Report 7533403-7 (Version None)
Quarter: 2011Q2

REPORT INFORMATION
  Report Type: 
  Country: None (occurrence: None)
  Receive Date: 20110608
  Receipt Date: 20051103
  Transmission Date: 20111010
  Serious: Yes (Hospitalization)
  Sender: FDA-Public Use
  Company Number: PHFR2005GB02815

PATIENT
  Sex: Male

DRUGS (3)
  1. CLOZAPINE [Suspect]
     Indication: SCHIZOPHRENIA
     Dosage: 200MG MANE 350MG NOCTE
     Route: 048
     Dates: start: 19910220
  2. VALPROATE SODIUM [Concomitant]
     Dosage: 200 MG, BID
  3. FLUOXETINE HCL [Concomitant]
     Dosage: 30 MG/DAY

REACTIONS (2)
  - INGROWN HAIR [None]
  - SUBCUTANEOUS ABSCESS [None]
